FAERS Safety Report 24395997 (Version 1)
Quarter: 2024Q4

REPORT INFORMATION
  Report Type: Spontaneous
  Country: US (occurrence: US)
  Receive Date: 20241004
  Receipt Date: 20241004
  Transmission Date: 20250114
  Serious: Yes (Other)
  Sender: BAYER
  Company Number: US-MLMSERVICE-20240923-PI201472-00099-1

PATIENT
  Age: 80 Year
  Sex: Male

DRUGS (7)
  1. CIPRO [Suspect]
     Active Substance: CIPROFLOXACIN HYDROCHLORIDE
     Dosage: 250 MG, BID
  2. CELEXA [Concomitant]
     Active Substance: CITALOPRAM HYDROBROMIDE
  3. ACETAMINOPHEN [Concomitant]
     Active Substance: ACETAMINOPHEN
     Dosage: 500 MG, Q4HR
  4. MELOXICAM [Concomitant]
     Active Substance: MELOXICAM
  5. CARBIDOPA\LEVODOPA [Concomitant]
     Active Substance: CARBIDOPA\LEVODOPA
     Dosage: 1 DF, Q8HR
  6. AMANTADINE [Concomitant]
     Active Substance: AMANTADINE
     Dosage: 100 MG, BID
  7. FAMOTIDINE [Concomitant]
     Active Substance: FAMOTIDINE

REACTIONS (2)
  - Delirium [Recovered/Resolved]
  - Toxic encephalopathy [Recovered/Resolved]
